FAERS Safety Report 7303749-6 (Version None)
Quarter: 2011Q1

REPORT INFORMATION
  Report Type: 
  Country: None (occurrence: None)
  Receive Date: 20110221
  Receipt Date: 20110210
  Transmission Date: 20110831
  Serious: Yes (Other)
  Sender: FDA-Public Use
  Company Number: US-ROCHE-736018

PATIENT
  Sex: Female
  Weight: 61.2 kg

DRUGS (3)
  1. ACCUTANE [Suspect]
     Route: 065
     Dates: start: 19990901, end: 19991201
  2. ACCUTANE [Suspect]
     Route: 065
     Dates: start: 19980101, end: 19981201
  3. DOXYCYCLINE [Concomitant]
     Dates: start: 19980203

REACTIONS (11)
  - INTESTINAL OBSTRUCTION [None]
  - DEPRESSION [None]
  - LIP DRY [None]
  - DRY EYE [None]
  - NASAL DRYNESS [None]
  - GASTROINTESTINAL INJURY [None]
  - INFLAMMATORY BOWEL DISEASE [None]
  - COLITIS ULCERATIVE [None]
  - ELLIPTOCYTOSIS [None]
  - ACNE [None]
  - DRY SKIN [None]
